FAERS Safety Report 6772758-8 (Version None)
Quarter: 2010Q2

REPORT INFORMATION
  Report Type: 
  Country: None (occurrence: None)
  Receive Date: 20100616
  Receipt Date: 20100607
  Transmission Date: 20101027
  Serious: Yes (Hospitalization)
  Sender: FDA-Public Use
  Company Number: US-AMGEN-KDC416784

PATIENT
  Sex: Male

DRUGS (15)
  1. NEUPOGEN [Suspect]
     Indication: NEUTROPENIA
     Dates: start: 20100414
  2. ALEFACEPT [Suspect]
     Route: 042
  3. PROGRAF [Concomitant]
  4. CLONIDINE [Concomitant]
  5. NORVASC [Concomitant]
  6. BACTRIM [Concomitant]
  7. PRILOSEC [Concomitant]
  8. LIBRAX [Concomitant]
  9. ZOCOR [Concomitant]
  10. NOVOLOG [Concomitant]
  11. METOPROLOL [Concomitant]
  12. CELLCEPT [Concomitant]
  13. PREDNISONE [Concomitant]
  14. LEVEMIR [Concomitant]
  15. MULTI-VITAMINS [Concomitant]

REACTIONS (3)
  - BACK PAIN [None]
  - CHEST PAIN [None]
  - LEUKOPENIA [None]
